FAERS Safety Report 15996117 (Version 1)
Quarter: 2019Q1

REPORT INFORMATION
  Report Type: Spontaneous
  Country: ES (occurrence: ES)
  Receive Date: 20190222
  Receipt Date: 20190222
  Transmission Date: 20190418
  Serious: Yes (Other)
  Sender: FDA-Public Use
  Company Number: ES-009507513-1902ESP007835

PATIENT
  Age: 5 Year
  Sex: Female

DRUGS (2)
  1. FLIXOTIDE [Concomitant]
     Active Substance: FLUTICASONE PROPIONATE
     Indication: ASTHMA
     Dosage: 2 DOSAGE FORM, Q12H; FORMUTAION: SUSPENSION FOR INHALATION IN PRESSURIZED CONTAINED, 1 INHALATOR WIT
     Route: 055
     Dates: start: 20180723
  2. SINGULAIR [Suspect]
     Active Substance: MONTELUKAST SODIUM
     Indication: ASTHMA
     Dosage: 4 MILLIGRAM, QD
     Route: 048
     Dates: start: 20170110, end: 20181213

REACTIONS (1)
  - Nervousness [Recovering/Resolving]

NARRATIVE: CASE EVENT DATE: 201810
